FAERS Safety Report 25877051 (Version 1)
Quarter: 2025Q4

REPORT INFORMATION
  Report Type: Spontaneous
  Country: EU (occurrence: EU)
  Receive Date: 20251003
  Receipt Date: 20251003
  Transmission Date: 20260117
  Serious: Yes (Other)
  Sender: MYLAN
  Company Number: EU-MYLANLABS-2025M1083694

PATIENT
  Age: 5 Decade

DRUGS (6)
  1. TRAMADOL [Suspect]
     Active Substance: TRAMADOL
     Indication: Headache
     Dosage: UNK
  2. AMITRIPTYLINE [Suspect]
     Active Substance: AMITRIPTYLINE
     Indication: Headache
     Dosage: UNK
  3. NAPROXEN [Suspect]
     Active Substance: NAPROXEN
     Indication: Headache
     Dosage: UNK
  4. NIMESULIDE [Suspect]
     Active Substance: NIMESULIDE
     Indication: Headache
     Dosage: UNK
  5. METHIMAZOLE [Suspect]
     Active Substance: METHIMAZOLE
     Indication: Headache
     Dosage: UNK
  6. TOLPERISONE [Suspect]
     Active Substance: TOLPERISONE
     Indication: Headache
     Dosage: UNK

REACTIONS (1)
  - Drug ineffective [Unknown]
